FAERS Safety Report 6347077-4 (Version None)
Quarter: 2009Q3

REPORT INFORMATION
  Report Type: 
  Country: None (occurrence: None)
  Receive Date: 20090910
  Receipt Date: 20090902
  Transmission Date: 20100115
  Serious: No
  Sender: FDA-Public Use
  Company Number: US-B.I. PHARMACEUTICALS,INC./RIDGEFIELD-2009-BP-10365BP

PATIENT
  Sex: Female

DRUGS (2)
  1. ZANTAC 75 [Suspect]
     Indication: GASTROOESOPHAGEAL REFLUX DISEASE
     Dosage: 75 MG
     Route: 048
     Dates: start: 20090831, end: 20090831
  2. ZANTAC 75 [Suspect]
     Dosage: 150 MG
     Route: 048
     Dates: start: 20090901, end: 20090902

REACTIONS (4)
  - DYSPEPSIA [None]
  - ERUCTATION [None]
  - FLATULENCE [None]
  - INSOMNIA [None]
